FAERS Safety Report 22948819 (Version 2)
Quarter: 2024Q3

REPORT INFORMATION
  Report Type: Spontaneous
  Country: US (occurrence: US)
  Receive Date: 20230915
  Receipt Date: 20240829
  Transmission Date: 20241016
  Serious: No
  Sender: BIOCON
  Company Number: US-MYLANLABS-2023M1097482

PATIENT
  Sex: Female

DRUGS (2)
  1. ADALIMUMAB [Suspect]
     Active Substance: ADALIMUMAB
     Indication: Osteomyelitis chronic
     Dosage: 1 PEN (EVERY 14 DAYS) Q2W
     Route: 058
  2. DEVICE [Suspect]
     Active Substance: DEVICE
     Indication: Osteomyelitis chronic

REACTIONS (2)
  - Device issue [Unknown]
  - Off label use [Unknown]
